FAERS Safety Report 21926882 (Version 4)
Quarter: 2024Q3

REPORT INFORMATION
  Report Type: Spontaneous
  Country: US (occurrence: US)
  Receive Date: 20230130
  Receipt Date: 20240924
  Transmission Date: 20241017
  Serious: No
  Sender: PFIZER
  Company Number: US-PFIZER INC-PV202300007776

PATIENT
  Age: 69 Year
  Sex: Female

DRUGS (1)
  1. EUCRISA [Suspect]
     Active Substance: CRISABOROLE
     Indication: Rash
     Dosage: 1 DF, 2X/DAY, [APPLY 1 APPLICATION ON THE SKIN TWICE A DAY; TO BACK AND HANDS 10 DAYS PRN RASH]
     Route: 061

REACTIONS (3)
  - Off label use [Unknown]
  - Hypoacusis [Unknown]
  - Speech disorder [Unknown]
